FAERS Safety Report 7192246-7 (Version None)
Quarter: 2010Q4

REPORT INFORMATION
  Report Type: 
  Country: None (occurrence: None)
  Receive Date: 20101223
  Receipt Date: 20101213
  Transmission Date: 20110411
  Serious: Yes (Other)
  Sender: FDA-Public Use
  Company Number: GXKR2010SI14136

PATIENT
  Sex: Male

DRUGS (4)
  1. CLOZAPINE [Suspect]
     Route: 065
  2. TRAMADOL (NGX) [Interacting]
     Route: 065
  3. DIAZEPAM [Interacting]
     Route: 065
  4. RISPERIDONE [Interacting]
     Route: 065

REACTIONS (5)
  - ASTHENIA [None]
  - CONFUSIONAL STATE [None]
  - DRUG INTERACTION [None]
  - FALL [None]
  - VERTIGO [None]
